FAERS Safety Report 9464810 (Version 1)
Quarter: 2013Q3

REPORT INFORMATION
  Report Type: Spontaneous
  Country: US (occurrence: US)
  Receive Date: 20130819
  Receipt Date: 20130819
  Transmission Date: 20140515
  Serious: No
  Sender: FDA-Public Use
  Company Number: US-PFIZER INC-2013238007

PATIENT
  Sex: Female

DRUGS (7)
  1. LYRICA [Suspect]
     Dosage: UNK
  2. ERYTHROMYCIN [Suspect]
     Dosage: UNK
  3. PREDNISONE [Suspect]
     Dosage: UNK
  4. ALBUTEROL [Suspect]
     Dosage: UNK
  5. COMPAZINE [Suspect]
     Dosage: UNK
  6. IMITREX [Suspect]
     Dosage: UNK
  7. INFLUENZA [Suspect]
     Dosage: UNK

REACTIONS (1)
  - Drug hypersensitivity [Unknown]
